FAERS Safety Report 17559002 (Version 6)
Quarter: 2025Q3

REPORT INFORMATION
  Report Type: Report from Study
  Country: US (occurrence: US)
  Receive Date: 20200319
  Receipt Date: 20250724
  Transmission Date: 20251020
  Serious: Yes (Other)
  Sender: TAKEDA
  Company Number: US-SHIRE-US202010223

PATIENT
  Sex: Female
  Weight: 63 kg

DRUGS (21)
  1. HUMAN IMMUNOGLOBULIN G [Suspect]
     Active Substance: HUMAN IMMUNOGLOBULIN G
     Indication: Immune system disorder
     Dosage: 8 GRAM, 1/WEEK
     Dates: start: 20170720
  2. HUMAN IMMUNOGLOBULIN G [Suspect]
     Active Substance: HUMAN IMMUNOGLOBULIN G
     Indication: Hypergammaglobulinaemia
     Dosage: 8 GRAM, 1/WEEK
  3. DIPHENHYDRAMINE [Concomitant]
     Active Substance: DIPHENHYDRAMINE
  4. EPINEPHRINE [Concomitant]
     Active Substance: EPINEPHRINE
  5. ACETAMINOPHEN [Concomitant]
     Active Substance: ACETAMINOPHEN
  6. CALCIUM CARBONATE\CHOLECALCIFEROL [Concomitant]
     Active Substance: CALCIUM CARBONATE\CHOLECALCIFEROL
  7. NEOMYCIN [Concomitant]
     Active Substance: NEOMYCIN
  8. POLYMYXIN [Concomitant]
     Active Substance: POLYMYXIN
  9. FISH OIL [Concomitant]
     Active Substance: FISH OIL
  10. LIDOCAINE [Concomitant]
     Active Substance: LIDOCAINE
  11. VALACYCLOVIR HYDROCHLORIDE [Concomitant]
     Active Substance: VALACYCLOVIR HYDROCHLORIDE
  12. FOSAMAX [Concomitant]
     Active Substance: ALENDRONATE SODIUM
  13. ROBITUSSIN (GUAIFENESIN) [Concomitant]
     Active Substance: GUAIFENESIN
  14. ALBUTEROL [Concomitant]
     Active Substance: ALBUTEROL
  15. COMBIGAN [Concomitant]
     Active Substance: BRIMONIDINE TARTRATE\TIMOLOL MALEATE
  16. GENTAMICIN [Concomitant]
     Active Substance: GENTAMICIN
  17. CLARITIN [Concomitant]
     Active Substance: LORATADINE
  18. CALCIUM [Concomitant]
     Active Substance: CALCIUM
  19. PREMARIN [Concomitant]
     Active Substance: ESTROGENS, CONJUGATED
  20. DIPHENHYDRAMINE HYDROCHLORIDE [Concomitant]
     Active Substance: DIPHENHYDRAMINE HYDROCHLORIDE
  21. NEMLUVIO [Concomitant]
     Active Substance: NEMOLIZUMAB-ILTO

REACTIONS (11)
  - Cataract [Unknown]
  - Fungal skin infection [Unknown]
  - Pharyngeal enanthema [Recovered/Resolved]
  - Skin disorder [Unknown]
  - Bronchitis [Unknown]
  - Dehydration [Unknown]
  - COVID-19 [Recovered/Resolved]
  - Product dose omission issue [Unknown]
  - Inappropriate schedule of product administration [Unknown]
  - Asthma [Unknown]
  - Rash pruritic [Unknown]
